FAERS Safety Report 8333800-6 (Version None)
Quarter: 2012Q1

REPORT INFORMATION
  Report Type: 
  Country: None (occurrence: None)
  Receive Date: 20120328
  Receipt Date: 20100728
  Transmission Date: 20120608
  Serious: Yes (Other)
  Sender: FDA-Public Use
  Company Number: PHHY2010US50073

PATIENT
  Age: 40 Year
  Sex: Female

DRUGS (1)
  1. VALTURNA [Suspect]
     Dosage: 1 DF QD, ORAL
     Route: 048
     Dates: start: 20100710, end: 20100728

REACTIONS (5)
  - ANGIOEDEMA [None]
  - OEDEMA PERIPHERAL [None]
  - SWELLING [None]
  - PHARYNGEAL OEDEMA [None]
  - SWELLING FACE [None]
